FAERS Safety Report 15153907 (Version 1)
Quarter: 2018Q3

REPORT INFORMATION
  Report Type: Spontaneous
  Country: FR (occurrence: FR)
  Receive Date: 20180717
  Receipt Date: 20180717
  Transmission Date: 20181010
  Serious: Yes (Disabling, Other)
  Sender: FDA-Public Use
  Company Number: PHHY2018FR045877

PATIENT
  Age: 77 Year
  Sex: Male

DRUGS (1)
  1. VORICONAZOLE. [Suspect]
     Active Substance: VORICONAZOLE
     Indication: BRONCHOPULMONARY ASPERGILLOSIS
     Dosage: 200 MG, UNK
     Route: 065

REACTIONS (3)
  - Macular opacity [Recovered/Resolved]
  - Hallucination, visual [Recovered/Resolved]
  - Visual field defect [Not Recovered/Not Resolved]
